FAERS Safety Report 11344682 (Version 1)
Quarter: 2015Q3

REPORT INFORMATION
  Report Type: Spontaneous
  Country: US (occurrence: US)
  Receive Date: 20150806
  Receipt Date: 20150806
  Transmission Date: 20151125
  Serious: Yes (Other)
  Sender: FDA-Public Use
  Company Number: US-ENDO PHARMACEUTICALS INC.-2015-001044

PATIENT
  Age: 75 Year
  Sex: Female

DRUGS (2)
  1. PREDNISONE TABLETS 10MG [Suspect]
     Active Substance: PREDNISONE
     Dosage: HALF-TABLET DOSES
     Route: 048
  2. PREDNISONE TABLETS 10MG [Suspect]
     Active Substance: PREDNISONE
     Indication: PRODUCT USED FOR UNKNOWN INDICATION
     Route: 048

REACTIONS (4)
  - Swelling face [Unknown]
  - Drug dose omission [Not Recovered/Not Resolved]
  - Rash [Recovered/Resolved]
  - Pharyngeal oedema [Unknown]
